FAERS Safety Report 6570118-6 (Version None)
Quarter: 2010Q1

REPORT INFORMATION
  Report Type: 
  Country: None (occurrence: None)
  Receive Date: 20100204
  Receipt Date: 20100121
  Transmission Date: 20100710
  Serious: Yes (Other)
  Sender: FDA-Public Use
  Company Number: CA-MYLANLABS-2010S1001509

PATIENT
  Age: 61 Year
  Sex: Female
  Weight: 69.8 kg

DRUGS (5)
  1. GEN-NIFEDIPINE [Suspect]
     Indication: HYPERTENSION
     Route: 048
     Dates: start: 20090101, end: 20090101
  2. CALCIUM [Concomitant]
  3. CENTRUM [Concomitant]
  4. VITAMIN C [Concomitant]
  5. COD LIVER OIL [Concomitant]
     Dosage: WITH VITAMIN D

REACTIONS (3)
  - BALANCE DISORDER [None]
  - DIZZINESS [None]
  - FATIGUE [None]
